FAERS Safety Report 17039241 (Version 2)
Quarter: 2021Q4

REPORT INFORMATION
  Report Type: Spontaneous
  Country: US (occurrence: US)
  Receive Date: 20191115
  Receipt Date: 20211221
  Transmission Date: 20220304
  Serious: No
  Sender: FDA-Public Use
  Company Number: US-SA-2019SA312442

PATIENT
  Age: 33 Year
  Sex: Male

DRUGS (5)
  1. DUPIXENT [Suspect]
     Active Substance: DUPILUMAB
     Indication: Dermatitis atopic
     Dosage: 300 MG, QOW
     Route: 058
     Dates: start: 20180601
  2. VITAMINS [Concomitant]
     Active Substance: VITAMINS
  3. MONTELUKAST SODIUM [Concomitant]
     Active Substance: MONTELUKAST SODIUM
  4. PREDNISONE [Concomitant]
     Active Substance: PREDNISONE
  5. DESONIDE [Concomitant]
     Active Substance: DESONIDE

REACTIONS (2)
  - Pain in extremity [Unknown]
  - Skin haemorrhage [Unknown]
